FAERS Safety Report 12747503 (Version 1)
Quarter: 2016Q3

REPORT INFORMATION
  Report Type: Spontaneous
  Country: US (occurrence: US)
  Receive Date: 20160915
  Receipt Date: 20160915
  Transmission Date: 20161109
  Serious: No
  Sender: FDA-Public Use
  Company Number: US-JAZZ-2016-US-009683

PATIENT
  Age: 49 Year
  Sex: Female

DRUGS (17)
  1. BOTOX [Concomitant]
     Active Substance: ONABOTULINUMTOXINA
  2. CYCLOBENZAPRINE [Concomitant]
     Active Substance: CYCLOBENZAPRINE
  3. NADOLOL. [Concomitant]
     Active Substance: NADOLOL
  4. RIZATRIPTAN. [Concomitant]
     Active Substance: RIZATRIPTAN
  5. EXCEDRIN MIGRAINE [Concomitant]
     Active Substance: ACETAMINOPHEN\ASPIRIN\CAFFEINE
  6. METOCLOPRAMIDE. [Concomitant]
     Active Substance: METOCLOPRAMIDE
  7. TOPIRAMATE. [Concomitant]
     Active Substance: TOPIRAMATE
  8. EPINEPHRINE. [Concomitant]
     Active Substance: EPINEPHRINE
  9. TAMOXIFEN [Concomitant]
     Active Substance: TAMOXIFEN
  10. CALCIUM +D [Concomitant]
     Active Substance: CALCIUM\VITAMIN D
  11. NEXIUM [Concomitant]
     Active Substance: ESOMEPRAZOLE MAGNESIUM
  12. RECLAST [Concomitant]
     Active Substance: ZOLEDRONIC ACID
  13. XYREM [Suspect]
     Active Substance: SODIUM OXYBATE
     Indication: NARCOLEPSY
     Dosage: 4.5 G, BID
     Route: 048
     Dates: start: 201605, end: 20160519
  14. ALPRAZOLAM. [Concomitant]
     Active Substance: ALPRAZOLAM
  15. METHYLPHENIDATE. [Concomitant]
     Active Substance: METHYLPHENIDATE
  16. VITAMIN D3 [Concomitant]
     Active Substance: CHOLECALCIFEROL
  17. TRAZODONE [Concomitant]
     Active Substance: TRAZODONE HYDROCHLORIDE

REACTIONS (4)
  - Anxiety [Unknown]
  - Unevaluable event [Unknown]
  - Panic attack [Unknown]
  - Palpitations [Unknown]

NARRATIVE: CASE EVENT DATE: 201605
